FAERS Safety Report 12180940 (Version 1)
Quarter: 2016Q1

REPORT INFORMATION
  Report Type: Spontaneous
  Country: JP (occurrence: JP)
  Receive Date: 20160315
  Receipt Date: 20160315
  Transmission Date: 20160526
  Serious: Yes (Other)
  Sender: FDA-Public Use
  Company Number: JP-ALLERGAN-1642501US

PATIENT
  Age: 7 Decade
  Sex: Male

DRUGS (1)
  1. RAPAFLO [Suspect]
     Active Substance: SILODOSIN
     Indication: BLADDER OUTLET OBSTRUCTION
     Dosage: UNK
     Route: 048
     Dates: end: 20151205

REACTIONS (1)
  - Loss of consciousness [Recovered/Resolved]

NARRATIVE: CASE EVENT DATE: 20151013
